FAERS Safety Report 7188035-X (Version None)
Quarter: 2010Q4

REPORT INFORMATION
  Report Type: 
  Country: None (occurrence: None)
  Receive Date: 20101222
  Receipt Date: 20100713
  Transmission Date: 20110411
  Serious: No
  Sender: FDA-Public Use
  Company Number: US-AMGEN-KDL424359

PATIENT

DRUGS (1)
  1. ENBREL [Suspect]
     Indication: RHEUMATOID ARTHRITIS
     Dosage: UNK UNK, UNK

REACTIONS (4)
  - JOINT LOCK [None]
  - MUSCULOSKELETAL PAIN [None]
  - NECK PAIN [None]
  - RHEUMATOID ARTHRITIS [None]
